FAERS Safety Report 7620472-9 (Version None)
Quarter: 2011Q3

REPORT INFORMATION
  Report Type: 
  Country: None (occurrence: None)
  Receive Date: 20110719
  Receipt Date: 20110715
  Transmission Date: 20111222
  Serious: Yes (Other)
  Sender: FDA-Public Use
  Company Number: AU-PFIZER INC-2011161465

PATIENT
  Age: 43 Year
  Sex: Female

DRUGS (3)
  1. SERTRALINE HYDROCHLORIDE [Suspect]
     Dosage: UNK
  2. VALPRO [Concomitant]
  3. SEROQUEL [Concomitant]

REACTIONS (2)
  - DEPRESSION [None]
  - BIPOLAR II DISORDER [None]
